FAERS Safety Report 6760819-9 (Version None)
Quarter: 2010Q2

REPORT INFORMATION
  Report Type: 
  Country: None (occurrence: None)
  Receive Date: 20100608
  Receipt Date: 20100601
  Transmission Date: 20101027
  Serious: Yes (Hospitalization)
  Sender: FDA-Public Use
  Company Number: PL-WYE-H15004110

PATIENT
  Sex: Male
  Weight: 83 kg

DRUGS (12)
  1. TEMSIROLIMUS [Suspect]
     Indication: RENAL CELL CARCINOMA
     Route: 042
     Dates: start: 20091104, end: 20100416
  2. RANITIDINE [Concomitant]
     Indication: PROPHYLAXIS AGAINST GASTROINTESTINAL ULCER
     Dosage: UNKNOWN
     Dates: start: 20100426, end: 20100429
  3. ESTAZOLAM [Concomitant]
     Indication: INSOMNIA
     Dosage: UNKNOWN
     Dates: start: 20100426, end: 20100429
  4. FENTANYL [Concomitant]
     Indication: BONE PAIN
     Dosage: UNKNOWN
     Dates: start: 20100219
  5. ENOXAPARIN SODIUM [Concomitant]
     Indication: PULMONARY EMBOLISM
     Dosage: UNKNOWN
     Dates: start: 20100303
  6. ATORVASTATIN [Concomitant]
     Indication: HYPERTRIGLYCERIDAEMIA
     Dosage: UNKNOWN
     Dates: start: 20100114
  7. ATORVASTATIN [Concomitant]
     Indication: PROPHYLAXIS
  8. KETOPROFEN [Concomitant]
     Indication: BONE PAIN
     Dosage: UNKNOWN
     Dates: start: 20100205
  9. ELECTROLYTE SOLUTIONS [Concomitant]
     Indication: PROPHYLAXIS
     Dosage: UNKNOWN
     Dates: start: 20100426, end: 20100429
  10. ELECTROLYTE SOLUTIONS [Concomitant]
     Indication: DEHYDRATION
  11. BEVACIZUMAB [Suspect]
     Indication: RENAL CELL CARCINOMA
     Route: 042
     Dates: start: 20091104, end: 20100416
  12. MORPHINE HYDROCHLORIDE [Concomitant]
     Indication: BONE PAIN
     Dosage: UNKNOWN
     Dates: start: 20100416, end: 20100427

REACTIONS (2)
  - ILEUS [None]
  - PERIPHERAL ISCHAEMIA [None]
